FAERS Safety Report 17514562 (Version 2)
Quarter: 2021Q3

REPORT INFORMATION
  Report Type: Spontaneous
  Country: US (occurrence: US)
  Receive Date: 20200307
  Receipt Date: 20210813
  Transmission Date: 20211014
  Serious: Yes (Death, Hospitalization, Other)
  Sender: FDA-Public Use
  Company Number: US-TEVA-2020-US-1195638

PATIENT
  Age: 82 Year
  Sex: Male
  Weight: 105.3 kg

DRUGS (10)
  1. VITAMIN E? 400 IU [Concomitant]
     Route: 065
     Dates: start: 19910101, end: 20180522
  2. VALSARTAN W/HYDROCHLOROTHIAZIDE ALEMBIC [Suspect]
     Active Substance: HYDROCHLOROTHIAZIDE\VALSARTAN
     Indication: HYPERTENSION
     Dosage: 320MG/25MG
     Route: 065
     Dates: start: 20170206, end: 20170817
  3. GLUCOSAMINE AND CHONDROITINE [Concomitant]
     Route: 065
     Dates: start: 19910101, end: 20180522
  4. VALSARTAN W/HYDROCHLOROTHIAZIDE ACTAVIS [Suspect]
     Active Substance: HYDROCHLOROTHIAZIDE\VALSARTAN
     Dosage: 320MG/25MG
     Route: 065
     Dates: start: 20160809, end: 20161104
  5. NEXIUM [Concomitant]
     Active Substance: ESOMEPRAZOLE MAGNESIUM
     Indication: DYSPEPSIA
     Dosage: AS NEEDED
     Route: 065
     Dates: start: 19910101, end: 20180522
  6. VITAMIN C [Concomitant]
     Active Substance: ASCORBIC ACID
     Route: 065
     Dates: start: 19910101, end: 20180522
  7. VALSARTAN W/HYDROCHLOROTHIAZIDE QUALITEST [Suspect]
     Active Substance: HYDROCHLOROTHIAZIDE\VALSARTAN
     Indication: HYPERTENSION
     Dosage: 320MG/25MG
     Route: 065
     Dates: start: 20150512, end: 20160507
  8. NEXIUM [Concomitant]
     Active Substance: ESOMEPRAZOLE MAGNESIUM
     Indication: GASTROOESOPHAGEAL REFLUX DISEASE
  9. CENTRUM AND CENTRUM SILVER MULTI VITAMINS [Concomitant]
     Route: 065
     Dates: start: 19910101, end: 20180522
  10. VALSARTAN W/HYDROCHLOROTHIAZIDE ACTAVIS [Suspect]
     Active Substance: HYDROCHLOROTHIAZIDE\VALSARTAN
     Indication: HYPERTENSION
     Dosage: 320MG/25MG
     Route: 065
     Dates: start: 20131010, end: 20150205

REACTIONS (5)
  - Non-small cell lung cancer stage IV [Fatal]
  - Dyspnoea [Not Recovered/Not Resolved]
  - Metastases to bone [Fatal]
  - Pleural effusion [Not Recovered/Not Resolved]
  - Metastases to liver [Fatal]

NARRATIVE: CASE EVENT DATE: 201705
